FAERS Safety Report 6128452-X (Version None)
Quarter: 2009Q1

REPORT INFORMATION
  Report Type: 
  Country: None (occurrence: None)
  Receive Date: 20090319
  Receipt Date: 20090311
  Transmission Date: 20090719
  Serious: Yes (Death)
  Sender: FDA-Public Use
  Company Number: 204596

PATIENT
  Age: 98 Year
  Sex: Female
  Weight: 29.6 kg

DRUGS (2)
  1. VANCOMYCIN HCL [Suspect]
     Indication: PNEUMONIA STAPHYLOCOCCAL
     Dosage: 500 MG, TWICE A DAY, INTRAVENOUS
     Route: 042
     Dates: start: 20090120, end: 20090125
  2. (AMICACINA /00391001/) [Concomitant]

REACTIONS (4)
  - DISSEMINATED INTRAVASCULAR COAGULATION [None]
  - HAEMOGLOBIN DECREASED [None]
  - PLATELET COUNT DECREASED [None]
  - RED BLOOD CELL COUNT DECREASED [None]
